FAERS Safety Report 6546544-8 (Version None)
Quarter: 2010Q1

REPORT INFORMATION
  Report Type: 
  Country: None (occurrence: None)
  Receive Date: 20100122
  Receipt Date: 20100112
  Transmission Date: 20100710
  Serious: Yes (Hospitalization)
  Sender: FDA-Public Use
  Company Number: AR-AMGEN-US386670

PATIENT
  Sex: Female
  Weight: 75 kg

DRUGS (5)
  1. ENBREL [Suspect]
     Indication: RHEUMATOID ARTHRITIS
     Route: 058
     Dates: start: 20060202
  2. CALCIUM [Concomitant]
     Indication: NUTRITIONAL SUPPORT
     Dosage: 1 TABLET; UNSPECIFIED DOSE STRENGTH; ONCE DAILY
     Route: 065
  3. METICORTEN [Concomitant]
     Route: 065
  4. METHOTREXATE [Concomitant]
     Indication: RHEUMATOID ARTHRITIS
     Dosage: 1 VIAL/15MG/ONCE WEEKLY
     Route: 065
  5. ACIFOL [Concomitant]
     Indication: RHEUMATOID ARTHRITIS
     Dosage: 1 TABLET; DOSE STRENGTH NOT PROVIDED; ONCE WEEKLY
     Route: 065

REACTIONS (2)
  - CYST [None]
  - EPISTAXIS [None]
